FAERS Safety Report 5040379-3 (Version None)
Quarter: 2006Q2

REPORT INFORMATION
  Report Type: 
  Country: None (occurrence: None)
  Receive Date: 20060630
  Receipt Date: 20060619
  Transmission Date: 20061013
  Serious: Yes (Hospitalization)
  Sender: FDA-Public Use
  Company Number: PHBS2006JP09270

PATIENT
  Age: 46 Year
  Sex: Male

DRUGS (2)
  1. GLEEVEC [Suspect]
     Indication: CHRONIC MYELOID LEUKAEMIA
     Dosage: 400 MG/D
     Route: 048
     Dates: start: 20050720
  2. KOLANTYL [Suspect]
     Dosage: 4 G/D
     Route: 048
     Dates: start: 20050720

REACTIONS (3)
  - TESTICULAR OPERATION [None]
  - TESTICULAR SWELLING [None]
  - TESTIS CANCER [None]
